FAERS Safety Report 5643210-8 (Version None)
Quarter: 2008Q1

REPORT INFORMATION
  Report Type: 
  Country: None (occurrence: None)
  Receive Date: 20080228
  Receipt Date: 20080221
  Transmission Date: 20080703
  Serious: Yes (Other)
  Sender: FDA-Public Use
  Company Number: DE-ASTRAZENECA-2008PK00374

PATIENT
  Age: 21637 Day
  Sex: Male
  Weight: 98 kg

DRUGS (6)
  1. SEROQUEL [Suspect]
     Indication: SLEEP DISORDER
     Dosage: 100 MG TO 200 MG
     Route: 048
     Dates: start: 20070426, end: 20070507
  2. SEROQUEL [Suspect]
     Indication: MERYCISM
     Dosage: 100 MG TO 200 MG
     Route: 048
     Dates: start: 20070426, end: 20070507
  3. REMERGIL [Concomitant]
     Indication: DEPRESSION
     Route: 048
  4. LITHIUM CARBONATE [Concomitant]
     Indication: DEPRESSION
     Route: 048
  5. ERGENYL CHRONO [Concomitant]
     Indication: DEPRESSION
     Route: 048
  6. DETRUSITOL [Concomitant]
     Indication: MICTURITION DISORDER
     Route: 048

REACTIONS (1)
  - SLEEP APNOEA SYNDROME [None]
